FAERS Safety Report 18568755 (Version 2)
Quarter: 2020Q4

REPORT INFORMATION
  Report Type: Report from Study
  Country: CA (occurrence: CA)
  Receive Date: 20201202
  Receipt Date: 20201225
  Transmission Date: 20210114
  Serious: Yes (Hospitalization)
  Sender: FDA-Public Use
  Company Number: NVSC2020CA162777

PATIENT
  Age: 19 Year
  Sex: Female

DRUGS (7)
  1. COSENTYX [Suspect]
     Active Substance: SECUKINUMAB
     Dosage: UNK
     Route: 065
     Dates: start: 20201028
  2. IBUPROFEN. [Concomitant]
     Active Substance: IBUPROFEN
     Indication: ANKYLOSING SPONDYLITIS
     Dosage: UNK
     Route: 048
  3. COSENTYX [Suspect]
     Active Substance: SECUKINUMAB
     Indication: ANKYLOSING SPONDYLITIS
     Dosage: 150 MG, QMO
     Route: 058
     Dates: start: 20200608
  4. COSENTYX [Suspect]
     Active Substance: SECUKINUMAB
     Dosage: 150 MG, QMO
     Route: 058
     Dates: start: 20200803
  5. HUMIRA [Concomitant]
     Active Substance: ADALIMUMAB
     Indication: ANKYLOSING SPONDYLITIS
     Dosage: UNK
     Route: 058
  6. CORTISONE [Concomitant]
     Active Substance: CORTISONE
     Indication: ANKYLOSING SPONDYLITIS
     Dosage: UNK
     Route: 065
  7. VIMOVO [Concomitant]
     Active Substance: ESOMEPRAZOLE MAGNESIUM\NAPROXEN
     Indication: ANKYLOSING SPONDYLITIS
     Dosage: UNK
     Route: 048

REACTIONS (7)
  - Syncope [Unknown]
  - Blood pressure abnormal [Unknown]
  - Fungal infection [Recovering/Resolving]
  - Heart rate increased [Unknown]
  - Blood phosphorus decreased [Unknown]
  - Blood potassium decreased [Unknown]
  - Drug ineffective [Unknown]

NARRATIVE: CASE EVENT DATE: 20200608
